FAERS Safety Report 10430487 (Version 1)
Quarter: 2014Q3

REPORT INFORMATION
  Report Type: Spontaneous
  Country: US (occurrence: None)
  Receive Date: 20140903
  Receipt Date: 20140903
  Transmission Date: 20150326
  Serious: Yes (Life-Threatening, Hospitalization)
  Sender: FDA-Public Use
  Company Number: None

PATIENT
  Age: 31 Year
  Sex: Female
  Weight: 90.72 kg

DRUGS (2)
  1. MARIJUANA [Suspect]
     Active Substance: CANNABIS SATIVA SUBSP. INDICA TOP
     Indication: MIGRAINE
     Route: 055
     Dates: start: 20140830
  2. MARIJUANA [Suspect]
     Active Substance: CANNABIS SATIVA SUBSP. INDICA TOP
     Indication: FIBROMYALGIA
     Route: 055
     Dates: start: 20140830

REACTIONS (10)
  - Memory impairment [None]
  - Feeling abnormal [None]
  - Sleep disorder [None]
  - Night sweats [None]
  - Palpitations [None]
  - Nightmare [None]
  - Dyspnoea [None]
  - Flashback [None]
  - Loss of consciousness [None]
  - Product contamination [None]

NARRATIVE: CASE EVENT DATE: 20140830
